FAERS Safety Report 11496146 (Version 6)
Quarter: 2016Q4

REPORT INFORMATION
  Report Type: Report from Study
  Country: CA (occurrence: CA)
  Receive Date: 20150911
  Receipt Date: 20161019
  Transmission Date: 20170206
  Serious: Yes (Hospitalization)
  Sender: FDA-Public Use
  Company Number: CA-ROCHE-ITM201410IM007218

PATIENT
  Age: 72 Year
  Sex: Female
  Weight: 68.2 kg

DRUGS (7)
  1. ESBRIET [Suspect]
     Active Substance: PIRFENIDONE
     Route: 048
     Dates: start: 201410
  2. ESBRIET [Suspect]
     Active Substance: PIRFENIDONE
     Route: 048
     Dates: start: 2014
  3. ELTROXIN [Concomitant]
     Active Substance: LEVOTHYROXINE
  4. ASA [Concomitant]
     Active Substance: ASPIRIN
  5. HCTZ [Concomitant]
     Active Substance: HYDROCHLOROTHIAZIDE
  6. ESBRIET [Suspect]
     Active Substance: PIRFENIDONE
     Route: 048
     Dates: start: 201412
  7. ESBRIET [Suspect]
     Active Substance: PIRFENIDONE
     Indication: IDIOPATHIC PULMONARY FIBROSIS
     Route: 048
     Dates: start: 20141002

REACTIONS (16)
  - Candida infection [Unknown]
  - Urinary tract infection [Unknown]
  - Ocular hyperaemia [Unknown]
  - Pulmonary function test abnormal [Unknown]
  - Dyspnoea [Recovered/Resolved]
  - Fatigue [Recovered/Resolved]
  - Salivary hypersecretion [Unknown]
  - Lower respiratory tract infection [Unknown]
  - Abscess [Unknown]
  - Cough [Recovered/Resolved]
  - Weight decreased [Unknown]
  - Cystitis [Unknown]
  - Pulmonary function test decreased [Unknown]
  - Cough [Unknown]
  - Nausea [Recovering/Resolving]
  - Decreased appetite [Unknown]

NARRATIVE: CASE EVENT DATE: 20141013
